FAERS Safety Report 4644048-0 (Version None)
Quarter: 2005Q2

REPORT INFORMATION
  Report Type: 
  Country: None (occurrence: None)
  Receive Date: 20050425
  Receipt Date: 20050126
  Transmission Date: 20051028
  Serious: Yes (Other)
  Sender: FDA-Public Use
  Company Number: US-ROCHE-393771

PATIENT
  Age: 74 Year
  Sex: Male
  Weight: 56.2 kg

DRUGS (5)
  1. PEGASYS [Suspect]
     Indication: HEPATITIS C
     Route: 058
     Dates: start: 20040128, end: 20050104
  2. COPEGUS [Concomitant]
     Indication: HEPATITIS C
     Route: 048
     Dates: start: 20040128, end: 20050110
  3. NORVASC [Concomitant]
  4. LIPITOR [Concomitant]
  5. CELEXA [Concomitant]
     Route: 048

REACTIONS (1)
  - SUDDEN HEARING LOSS [None]
